FAERS Safety Report 10370965 (Version 1)
Quarter: 2014Q3

REPORT INFORMATION
  Report Type: Spontaneous
  Country: US (occurrence: US)
  Receive Date: 20140808
  Receipt Date: 20140808
  Transmission Date: 20150326
  Serious: No
  Sender: FDA-Public Use
  Company Number: US-GLAXOSMITHKLINE-A1044378A

PATIENT
  Age: 73 Year
  Sex: Female

DRUGS (4)
  1. NEURONTIN [Concomitant]
     Active Substance: GABAPENTIN
  2. BEXXAR [Suspect]
     Active Substance: TOSITUMOMAB\TOSITUMOMAB I-131
     Indication: B-CELL LYMPHOMA
     Route: 042
     Dates: start: 20130213
  3. MULTIPLE MEDICATIONS [Concomitant]
     Active Substance: UNSPECIFIED INGREDIENT
  4. MACROBID [Concomitant]
     Active Substance: NITROFURANTOIN\NITROFURANTOIN MONOHYDRATE

REACTIONS (2)
  - Laboratory test abnormal [Recovering/Resolving]
  - Lymphadenopathy [Unknown]
